FAERS Safety Report 8293740-8 (Version None)
Quarter: 2012Q2

REPORT INFORMATION
  Report Type: 
  Country: None (occurrence: None)
  Receive Date: 20120413
  Receipt Date: 20120404
  Transmission Date: 20120825
  Serious: Yes (Hospitalization)
  Sender: FDA-Public Use
  Company Number: 2012SP010357

PATIENT
  Age: 69 Year
  Sex: Female
  Weight: 60 kg

DRUGS (7)
  1. LIPITOR [Suspect]
     Indication: HYPERCHOLESTEROLAEMIA
     Dosage: 5 MG;QD;PO
     Route: 048
     Dates: start: 20071130, end: 20120131
  2. PAXIL [Suspect]
     Indication: PRODUCT USED FOR UNKNOWN INDICATION
  3. CLARITIN REDITABS [Suspect]
     Indication: PRURITUS GENERALISED
     Dosage: 10 MG;QD;PO
     Route: 048
     Dates: start: 20111220, end: 20120131
  4. CLONAZEPAM [Suspect]
     Indication: PRODUCT USED FOR UNKNOWN INDICATION
  5. HALCION [Suspect]
     Indication: PRODUCT USED FOR UNKNOWN INDICATION
  6. LORAZEPAM [Suspect]
     Indication: PRODUCT USED FOR UNKNOWN INDICATION
  7. TOLEDOMIN (MILNACIPRAN HYDROCHLORIDE) [Suspect]
     Indication: PRODUCT USED FOR UNKNOWN INDICATION

REACTIONS (4)
  - FLATULENCE [None]
  - LIVER DISORDER [None]
  - PERITONEAL DISORDER [None]
  - ABDOMINAL PAIN [None]
